FAERS Safety Report 13259925 (Version 1)
Quarter: 2017Q1

REPORT INFORMATION
  Report Type: Spontaneous
  Country: US (occurrence: US)
  Receive Date: 20170222
  Receipt Date: 20170222
  Transmission Date: 20170428
  Serious: No
  Sender: FDA-Public Use
  Company Number: US-IGSA-GBI004580

PATIENT
  Age: 81 Year
  Sex: Female

DRUGS (10)
  1. NORMAL SALINE [Concomitant]
     Active Substance: SODIUM CHLORIDE
  2. ALBUTEIN [Suspect]
     Active Substance: ALBUMIN HUMAN
     Indication: RESUSCITATION
     Route: 042
     Dates: start: 20160907, end: 20160907
  3. EPINEPHRINE. [Concomitant]
     Active Substance: EPINEPHRINE
  4. KCL [Concomitant]
     Active Substance: POTASSIUM CHLORIDE
  5. EPINEPHRINE. [Concomitant]
     Active Substance: EPINEPHRINE
  6. EPINEPHRINE. [Concomitant]
     Active Substance: EPINEPHRINE
  7. EPINEPHRINE. [Concomitant]
     Active Substance: EPINEPHRINE
  8. AMIODARONE [Concomitant]
     Active Substance: AMIODARONE
  9. EPINEPHRINE. [Concomitant]
     Active Substance: EPINEPHRINE
  10. NICARDIPINE [Concomitant]
     Active Substance: NICARDIPINE

REACTIONS (1)
  - Hypotension [Recovered/Resolved]

NARRATIVE: CASE EVENT DATE: 20160907
